FAERS Safety Report 4311815-2 (Version None)
Quarter: 2004Q1

REPORT INFORMATION
  Report Type: 
  Country: None (occurrence: None)
  Receive Date: 20040304
  Receipt Date: 20040223
  Transmission Date: 20041129
  Serious: Yes (Congenital Anomaly)
  Sender: FDA-Public Use
  Company Number: WAES 0402COL00033B1

PATIENT

DRUGS (1)
  1. PROSCAR [Suspect]
     Indication: ALOPECIA

REACTIONS (2)
  - HYPOSPADIAS [None]
  - TRANSMISSION OF DRUG VIA SEMEN [None]
